FAERS Safety Report 26189512 (Version 1)
Quarter: 2025Q4

REPORT INFORMATION
  Report Type: Spontaneous
  Country: US (occurrence: US)
  Receive Date: 20251223
  Receipt Date: 20251223
  Transmission Date: 20260118
  Serious: No
  Sender: Kenvue
  Company Number: US-KENVUE-20251110189

PATIENT
  Sex: Male

DRUGS (7)
  1. IMODIUM [Suspect]
     Active Substance: LOPERAMIDE HYDROCHLORIDE
     Indication: Diarrhoea
     Route: 065
  2. TREPROSTINIL [Concomitant]
     Active Substance: TREPROSTINIL
     Indication: Pulmonary arterial hypertension
     Dosage: 128 MICROGRAM, FOUR TIME A DAY (128 ?G (64 ?G+ 64 ?G))
  3. TREPROSTINIL [Concomitant]
     Active Substance: TREPROSTINIL
     Dosage: 64 MICROGRAM, EVERY 2 HOUR
  4. TREPROSTINIL [Concomitant]
     Active Substance: TREPROSTINIL
     Dosage: 64 MICROGRAM, EVERY 2 HOUR (EVERY 2 HOURS FOR 8 DOSES A DAY, SOMETIMES 9-10 DOSES A DAY)
  5. TREPROSTINIL [Concomitant]
     Active Substance: TREPROSTINIL
     Dosage: UNK
  6. TYVASO DPI [Concomitant]
     Active Substance: TREPROSTINIL
     Indication: Pulmonary arterial hypertension
     Dosage: 64 MICROGRAM, EVERY 2 HOUR (1-64 ?G CARTRIDGE, Q2H INSTEAD OF 2-64 ?G CARTRIDGES EVERY 4 HOURS [QID]) (SUPPOSED TO BE TAKING 128 ?G EVERY 4 HOURS FOR 4 DOSES A DAY BUT HE WAS TAKING 64 ?G EVERY 2 HOURS FOR 8 DOSES A DAY, SOMETIMES 9-10 DOSES A DAY)
     Dates: start: 202208
  7. OFEV [Concomitant]
     Active Substance: NINTEDANIB
     Indication: Product used for unknown indication
     Route: 065

REACTIONS (1)
  - Drug ineffective [Unknown]
